FAERS Safety Report 9016953 (Version 5)
Quarter: 2013Q1

REPORT INFORMATION
  Report Type: Report from Study
  Country: US (occurrence: US)
  Receive Date: 20130117
  Receipt Date: 20130208
  Transmission Date: 20140127
  Serious: Yes (Hospitalization, Other)
  Sender: FDA-Public Use
  Company Number: US-009507513-1301USA003470

PATIENT
  Age: 77 Year
  Sex: Female
  Weight: 64.4 kg

DRUGS (9)
  1. BLINDED GLIMEPIRIDE [Suspect]
     Indication: TYPE 2 DIABETES MELLITUS
     Dosage: UNK
     Route: 048
     Dates: start: 20121130, end: 20130103
  2. BLINDED PLACEBO [Suspect]
     Indication: TYPE 2 DIABETES MELLITUS
     Dosage: UNK
     Route: 048
     Dates: start: 20121130, end: 20130103
  3. BLINDED POST TRIAL THERAPY [Suspect]
     Indication: TYPE 2 DIABETES MELLITUS
     Dosage: UNK
     Route: 048
     Dates: start: 20121130, end: 20130103
  4. BLINDED PRE TRIAL THERAPY [Suspect]
     Indication: TYPE 2 DIABETES MELLITUS
     Dosage: UNK
     Route: 048
     Dates: start: 20121130, end: 20130103
  5. BLINDED SIMVASTATIN [Suspect]
     Indication: TYPE 2 DIABETES MELLITUS
     Dosage: UNK
     Route: 048
     Dates: start: 20121130, end: 20130103
  6. BLINDED SITAGLIPTIN PHOSPHATE [Suspect]
     Indication: TYPE 2 DIABETES MELLITUS
     Dosage: UNK
     Route: 048
     Dates: start: 20121130, end: 20130103
  7. BLINDED SITAGLIPTIN PHOSPHATE (+) SIMVASTATIN [Suspect]
     Indication: TYPE 2 DIABETES MELLITUS
     Dosage: UNK
     Route: 048
     Dates: start: 20121130, end: 20130103
  8. CALCIUM (UNSPECIFIED) [Concomitant]
     Indication: ROUTINE HEALTH MAINTENANCE
     Dosage: 1 DF, QD
     Route: 048
     Dates: start: 20050101
  9. METFORMIN [Concomitant]
     Indication: DIABETES MELLITUS
     Dosage: 1500 UNK, QD
     Route: 048
     Dates: start: 20100101

REACTIONS (2)
  - Pancreatitis [Recovered/Resolved]
  - Intestinal obstruction [Recovered/Resolved]
